FAERS Safety Report 8901583 (Version 1)
Quarter: 2012Q4

REPORT INFORMATION
  Report Type: 
  Country: US (occurrence: None)
  Receive Date: 20121108
  Receipt Date: 20121108
  Transmission Date: 20130627
  Serious: Yes (Other)
  Sender: FDA-Public Use
  Company Number: None

PATIENT
  Sex: Male

DRUGS (1)
  1. KUVAN [Suspect]
     Route: 048
     Dates: start: 20120802, end: 20121012

REACTIONS (1)
  - Personality change [None]
